FAERS Safety Report 11984355 (Version 2)
Quarter: 2016Q4

REPORT INFORMATION
  Report Type: Spontaneous
  Country: US (occurrence: US)
  Receive Date: 20160201
  Receipt Date: 20161124
  Transmission Date: 20170206
  Serious: Yes (Other)
  Sender: FDA-Public Use
  Company Number: US-ASTRAZENECA-2016SE08994

PATIENT
  Age: 746 Month
  Sex: Female
  Weight: 72.1 kg

DRUGS (6)
  1. BRILINTA [Suspect]
     Active Substance: TICAGRELOR
     Indication: BRAIN STEM STROKE
     Route: 048
     Dates: start: 201511
  2. ASPIRIN. [Concomitant]
     Active Substance: ASPIRIN
     Indication: BRAIN STEM STROKE
     Route: 048
     Dates: start: 201511
  3. PRILOSEC [Suspect]
     Active Substance: OMEPRAZOLE MAGNESIUM
     Indication: DYSPEPSIA
     Route: 048
     Dates: start: 201508
  4. ASPIRIN. [Concomitant]
     Active Substance: ASPIRIN
     Indication: STENT PLACEMENT
     Route: 048
     Dates: start: 201511
  5. PEPCID [Concomitant]
     Active Substance: FAMOTIDINE
     Indication: DYSPEPSIA
     Dosage: TWO TIMES A DAY
     Route: 048
  6. BRILINTA [Suspect]
     Active Substance: TICAGRELOR
     Indication: STENT PLACEMENT
     Route: 048
     Dates: start: 201511

REACTIONS (5)
  - Insomnia [Unknown]
  - Nocturnal dyspnoea [Not Recovered/Not Resolved]
  - Dyspnoea [Unknown]
  - Weight decreased [Not Recovered/Not Resolved]
  - Cerebrovascular accident [Unknown]

NARRATIVE: CASE EVENT DATE: 201508
